FAERS Safety Report 6061603-4 (Version None)
Quarter: 2009Q1

REPORT INFORMATION
  Report Type: 
  Country: None (occurrence: None)
  Receive Date: 20090202
  Receipt Date: 20090123
  Transmission Date: 20090719
  Serious: Yes (Hospitalization)
  Sender: FDA-Public Use
  Company Number: A0724615A

PATIENT
  Age: 54 Year
  Sex: Male
  Weight: 81.8 kg

DRUGS (4)
  1. AVANDIA [Suspect]
     Dosage: 4MG PER DAY
     Route: 048
     Dates: start: 20060128
  2. AVANDAMET [Suspect]
     Route: 048
     Dates: start: 20030521, end: 20050731
  3. METFORMIN [Concomitant]
  4. AMARYL [Concomitant]

REACTIONS (1)
  - MYOCARDIAL INFARCTION [None]
